FAERS Safety Report 5735147-0 (Version None)
Quarter: 2008Q2

REPORT INFORMATION
  Report Type: 
  Country: None (occurrence: None)
  Receive Date: 20080512
  Receipt Date: 20080429
  Transmission Date: 20081010
  Serious: Yes (Life-Threatening)
  Sender: FDA-Public Use
  Company Number: FR-ROCHE-561574

PATIENT
  Age: 25 Year
  Sex: Female

DRUGS (4)
  1. ROCEPHIN [Suspect]
     Indication: PHARYNGITIS
     Dosage: FORMULATION: INJECTABLE SOLUTION.
     Route: 042
     Dates: start: 20080201, end: 20080201
  2. CLAMOXYL [Suspect]
     Indication: PHARYNGITIS
     Route: 048
     Dates: start: 20080126, end: 20080131
  3. CLAMOXYL [Suspect]
     Route: 048
     Dates: start: 20080126, end: 20080131
  4. ACETAMINOPHEN [Concomitant]
     Dosage: DOSAGE REPORTED AS : 8 DOSES.
     Route: 048
     Dates: start: 20080126, end: 20080130

REACTIONS (2)
  - HEPATITIS FULMINANT [None]
  - RASH [None]
